FAERS Safety Report 25262896 (Version 1)
Quarter: 2025Q2

REPORT INFORMATION
  Report Type: Other
  Country: GB (occurrence: GB)
  Receive Date: 20250502
  Receipt Date: 20250502
  Transmission Date: 20250716
  Serious: Yes (Other)
  Sender: STRIDES
  Company Number: None

PATIENT
  Age: 27 Year
  Sex: Male
  Weight: 94 kg

DRUGS (2)
  1. METHYLPHENIDATE [Suspect]
     Active Substance: METHYLPHENIDATE
     Indication: Attention deficit hyperactivity disorder
     Route: 065
  2. METHYLPHENIDATE [Suspect]
     Active Substance: METHYLPHENIDATE
     Route: 065

REACTIONS (2)
  - Musculoskeletal chest pain [Recovering/Resolving]
  - Testicular pain [Recovered/Resolved]

NARRATIVE: CASE EVENT DATE: 20250311
